FAERS Safety Report 5333121-X (Version None)
Quarter: 2007Q2

REPORT INFORMATION
  Report Type: 
  Country: None (occurrence: None)
  Receive Date: 20070524
  Receipt Date: 20070516
  Transmission Date: 20071010
  Serious: Yes (Hospitalization)
  Sender: FDA-Public Use
  Company Number: US-ELI_LILLY_AND_COMPANY-US200605005831

PATIENT
  Sex: Male
  Weight: 120.18 kg

DRUGS (2)
  1. ZYPREXA [Suspect]
     Dosage: 5 MG, UNK
     Dates: start: 20010321, end: 20050928
  2. ZYPREXA [Suspect]
     Dosage: 15 MG, UNK

REACTIONS (4)
  - DIABETES MELLITUS [None]
  - ERECTILE DYSFUNCTION [None]
  - GUILLAIN-BARRE SYNDROME [None]
  - WEIGHT INCREASED [None]
